FAERS Safety Report 6092242-7 (Version None)
Quarter: 2009Q1

REPORT INFORMATION
  Report Type: 
  Country: None (occurrence: None)
  Receive Date: 20090225
  Receipt Date: 20090220
  Transmission Date: 20090719
  Serious: Yes (Death, Hospitalization)
  Sender: FDA-Public Use
  Company Number: A0757308A

PATIENT
  Age: 88 Year
  Sex: Male
  Weight: 79.5 kg

DRUGS (3)
  1. AVANDIA [Suspect]
     Indication: TYPE 2 DIABETES MELLITUS
     Route: 065
     Dates: start: 20010403, end: 20080409
  2. ZESTRIL [Concomitant]
  3. VITAMIN B-12 [Concomitant]

REACTIONS (3)
  - CARDIAC FAILURE CONGESTIVE [None]
  - DEMENTIA [None]
  - MYOCARDIAL INFARCTION [None]
